FAERS Safety Report 5684377-5 (Version None)
Quarter: 2008Q1

REPORT INFORMATION
  Report Type: 
  Country: None (occurrence: None)
  Receive Date: 20080328
  Receipt Date: 20080326
  Transmission Date: 20080703
  Serious: Yes (Hospitalization)
  Sender: FDA-Public Use
  Company Number: B0514132A

PATIENT
  Age: 34 Year
  Sex: Female

DRUGS (4)
  1. AUGMENTIN '125' [Suspect]
     Indication: BACTERIAL INFECTION
     Route: 048
     Dates: start: 20070901, end: 20070101
  2. ROYAL JELLY [Concomitant]
  3. PROPOLIS [Concomitant]
  4. ECHINACEA [Concomitant]

REACTIONS (3)
  - FATIGUE [None]
  - HEPATITIS [None]
  - JAUNDICE [None]
